FAERS Safety Report 7799551-1 (Version None)
Quarter: 2011Q4

REPORT INFORMATION
  Report Type: 
  Country: None (occurrence: None)
  Receive Date: 20111006
  Receipt Date: 20111006
  Transmission Date: 20120403
  Serious: Yes (Disabling)
  Sender: FDA-Public Use
  Company Number: None

PATIENT
  Age: 31 Year
  Sex: Female
  Weight: 70.306 kg

DRUGS (1)
  1. TERBINAFINE HCL [Suspect]
     Indication: ONYCHOMYCOSIS
     Dosage: 250 MG
     Route: 048
     Dates: start: 20110921, end: 20111002

REACTIONS (6)
  - EYE DISORDER [None]
  - DYSPNOEA [None]
  - DISTURBANCE IN ATTENTION [None]
  - VISUAL IMPAIRMENT [None]
  - HYPOAESTHESIA [None]
  - AGEUSIA [None]
